FAERS Safety Report 22935378 (Version 2)
Quarter: 2023Q4

REPORT INFORMATION
  Report Type: Spontaneous
  Country: FR (occurrence: FR)
  Receive Date: 20230912
  Receipt Date: 20231206
  Transmission Date: 20240109
  Serious: Yes (Hospitalization, Other)
  Sender: FDA-Public Use
  Company Number: None

PATIENT
  Age: 56 Year
  Sex: Female
  Weight: 63 kg

DRUGS (6)
  1. PEMBROLIZUMAB [Suspect]
     Active Substance: PEMBROLIZUMAB
     Indication: Breast cancer
     Dosage: 80 MILLIGRAM/SQ. METER
     Route: 042
     Dates: start: 20230614
  2. PEMBROLIZUMAB [Suspect]
     Active Substance: PEMBROLIZUMAB
     Dosage: SECOND TREATMENT ^2?ME CURE^ C2J15
     Route: 042
     Dates: start: 20230719
  3. CARBOPLATIN [Suspect]
     Active Substance: CARBOPLATIN
     Indication: Breast cancer
     Dosage: 1.5 AUC 1ST TREATMENT ^1ERE CURE^
     Route: 042
     Dates: start: 20230614
  4. CARBOPLATIN [Suspect]
     Active Substance: CARBOPLATIN
     Dosage: 2ND TREATMENT ^2?ME CURE^
     Route: 042
     Dates: start: 20230719
  5. PACLITAXEL [Suspect]
     Active Substance: PACLITAXEL
     Indication: Breast cancer
     Dosage: 80 MILLIGRAM/SQ. METER
     Route: 042
     Dates: start: 20230614
  6. PACLITAXEL [Suspect]
     Active Substance: PACLITAXEL
     Dosage: 2ND TREATMENT ^2?ME CURE^
     Route: 042
     Dates: start: 20230719

REACTIONS (2)
  - Hepatic cytolysis [Recovered/Resolved]
  - Urticaria [Recovered/Resolved]

NARRATIVE: CASE EVENT DATE: 20230726
